FAERS Safety Report 23845860 (Version 1)
Quarter: 2024Q2

REPORT INFORMATION
  Report Type: Spontaneous
  Country: US (occurrence: US)
  Receive Date: 20240512
  Receipt Date: 20240512
  Transmission Date: 20240715
  Serious: No
  Sender: FDA-Public Use
  Company Number: US-CIPLA LTD-2023US05176

PATIENT

DRUGS (4)
  1. ALBUTEROL [Suspect]
     Active Substance: ALBUTEROL
     Indication: Pneumonia
     Dosage: 180 MCG (2 PUFFS), 3 TO 4 TIMES A DAY
  2. ALBUTEROL [Suspect]
     Active Substance: ALBUTEROL
     Dosage: 180 MCG (2 PUFFS), 3 TO 4 TIMES A DAY
     Dates: start: 202304
  3. ALBUTEROL [Suspect]
     Active Substance: ALBUTEROL
     Dosage: 90 MCG (2 PUFFS), 3 TO 4 TIMES A DAY
     Dates: start: 202305, end: 20230727
  4. ALBUTEROL [Suspect]
     Active Substance: ALBUTEROL
     Dosage: 90 MCG (2 PUFFS), 3 TO 4 TIMES A DAY
     Dates: start: 202305, end: 20230727

REACTIONS (10)
  - Illness [Unknown]
  - Abdominal pain upper [Not Recovered/Not Resolved]
  - Aphonia [Unknown]
  - Throat clearing [Not Recovered/Not Resolved]
  - Sensation of foreign body [Not Recovered/Not Resolved]
  - Cough [Recovered/Resolved]
  - Off label use [Unknown]
  - Dyspnoea [Unknown]
  - Dysphonia [Not Recovered/Not Resolved]
  - Headache [Not Recovered/Not Resolved]

NARRATIVE: CASE EVENT DATE: 20230101
